FAERS Safety Report 9209512 (Version 1)
Quarter: 2013Q1

REPORT INFORMATION
  Report Type: Spontaneous
  Country: US (occurrence: None)
  Receive Date: 20120809
  Receipt Date: 20120809
  Transmission Date: 20140127
  Serious: Yes (Other)
  Sender: FDA-Public Use
  Company Number: 2012US004818

PATIENT
  Age: 84 Year
  Sex: Male
  Weight: 95 kg

DRUGS (1)
  1. VESICARE [Suspect]
     Indication: HYPERTONIC BLADDER
     Route: 048
     Dates: start: 201202

REACTIONS (2)
  - Hypersensitivity [None]
  - Constipation [None]
